APPROVED DRUG PRODUCT: PRAVASTATIN SODIUM
Active Ingredient: PRAVASTATIN SODIUM
Strength: 80MG
Dosage Form/Route: TABLET;ORAL
Application: A077793 | Product #001 | TE Code: AB
Applicant: AUROBINDO PHARMA USA INC
Approved: Jan 15, 2008 | RLD: No | RS: Yes | Type: RX